FAERS Safety Report 8958563 (Version 1)
Quarter: 2012Q4

REPORT INFORMATION
  Report Type: Spontaneous
  Country: US (occurrence: None)
  Receive Date: 20121203
  Receipt Date: 20121203
  Transmission Date: 20130627
  Serious: Yes (Hospitalization, Other)
  Sender: FDA-Public Use
  Company Number: ADR-2012-02153

PATIENT
  Age: 59 Year
  Sex: Male

DRUGS (2)
  1. BACLOFEN INTRATHECAL [Suspect]
     Indication: FAILED BACK SURGERY SYNDROME
  2. MORPHINE [Concomitant]

REACTIONS (4)
  - Sedation [None]
  - Fatigue [None]
  - Withdrawal syndrome [None]
  - Infusion site granuloma [None]
